FAERS Safety Report 8234193-5 (Version None)
Quarter: 2012Q1

REPORT INFORMATION
  Report Type: 
  Country: None (occurrence: None)
  Receive Date: 20120326
  Receipt Date: 20120322
  Transmission Date: 20120608
  Serious: Yes (Death, Other)
  Sender: FDA-Public Use
  Company Number: GB-B.I. PHARMACEUTICALS,INC./RIDGEFIELD-2012-UK-00437UK

PATIENT
  Age: 92 Year
  Sex: Female

DRUGS (1)
  1. PRADAXA [Suspect]
     Indication: ATRIAL FIBRILLATION
     Dosage: 75 MG

REACTIONS (4)
  - RENAL FAILURE ACUTE [None]
  - FALL [None]
  - ATRIAL FIBRILLATION [None]
  - CARDIAC FAILURE CHRONIC [None]
